FAERS Safety Report 5452244-8 (Version None)
Quarter: 2007Q3

REPORT INFORMATION
  Report Type: 
  Country: None (occurrence: None)
  Receive Date: 20070912
  Receipt Date: 20070912
  Transmission Date: 20080115
  Serious: Yes (Hospitalization)
  Sender: FDA-Public Use
  Company Number: None

PATIENT
  Age: 56 Year
  Sex: Female
  Weight: 72.5755 kg

DRUGS (1)
  1. SODIUM CHLORIDE [Suspect]
     Indication: NASAL CONGESTION
     Dosage: STREAM  1  NASAL   (DURATION: SEVERAL MINUTES)
     Route: 045
     Dates: start: 20070909, end: 20070909

REACTIONS (2)
  - HYPERSENSITIVITY [None]
  - PAIN [None]
